FAERS Safety Report 16101166 (Version 2)
Quarter: 2019Q2

REPORT INFORMATION
  Report Type: Spontaneous
  Country: FR (occurrence: FR)
  Receive Date: 20190321
  Receipt Date: 20190605
  Transmission Date: 20190711
  Serious: Yes (Hospitalization, Other)
  Sender: FDA-Public Use
  Company Number: FR-INCYTE CORPORATION-2019IN002634

PATIENT

DRUGS (7)
  1. JAKAVI [Suspect]
     Active Substance: RUXOLITINIB
     Indication: MYELOFIBROSIS
     Dosage: 20 MG, BID
     Route: 048
     Dates: start: 20170520
  2. DAFALGAN CODEINE [Concomitant]
     Active Substance: ACETAMINOPHEN\CODEINE PHOSPHATE
     Indication: PAIN
     Dosage: UNK UNK, QD (1 TO 4 TABLETS OF 500 MG/30 MG)
     Route: 048
     Dates: start: 2008
  3. COUMADINE [Concomitant]
     Active Substance: WARFARIN SODIUM
     Indication: PORTAL VEIN THROMBOSIS
     Dosage: UNK UNK, QD (7.0 MG TO 8.0 MG  ACCORDING TO INR OF EITHER 5MG OR 2MG TABLETS)
     Route: 048
     Dates: start: 200907
  4. PROPANOLOL [Concomitant]
     Active Substance: PROPRANOLOL HYDROCHLORIDE
     Indication: PORTAL HYPERTENSION
     Dosage: 40 MG, QD
     Route: 048
     Dates: start: 200805
  5. INEXIUM [Concomitant]
     Active Substance: ESOMEPRAZOLE
     Indication: PRODUCT USED FOR UNKNOWN INDICATION
     Dosage: 40 MG, QD
     Route: 048
     Dates: start: 200805
  6. SPASFON LYOC [Concomitant]
     Active Substance: PHLOROGLUCINOL
     Indication: PRODUCT USED FOR UNKNOWN INDICATION
     Dosage: 4 TO 6 MG, QD
     Route: 048
  7. JAKAVI [Suspect]
     Active Substance: RUXOLITINIB
     Dosage: 15 MG, QD (2 TABLETS OF 15 MG)
     Route: 048
     Dates: start: 20190211

REACTIONS (4)
  - Diarrhoea [Unknown]
  - Basal cell carcinoma [Recovered/Resolved]
  - Neoplasm skin [Unknown]
  - Ear neoplasm [Recovered/Resolved]

NARRATIVE: CASE EVENT DATE: 2017
